FAERS Safety Report 17818183 (Version 1)
Quarter: 2020Q2

REPORT INFORMATION
  Report Type: Spontaneous
  Country: GB (occurrence: GB)
  Receive Date: 20200522
  Receipt Date: 20200522
  Transmission Date: 20200714
  Serious: Yes (Other)
  Sender: FDA-Public Use
  Company Number: GB-AMERICAN REGENT INC-2020000989

PATIENT
  Age: 41 Year
  Sex: Female

DRUGS (2)
  1. FERINJECT [Suspect]
     Active Substance: FERRIC CARBOXYMALTOSE
     Indication: ANAEMIA OF PREGNANCY
     Dosage: 1500 MILLIGRAM
     Route: 042
     Dates: start: 20181120, end: 20181120
  2. FERINJECT [Suspect]
     Active Substance: FERRIC CARBOXYMALTOSE
     Indication: IRON DEFICIENCY ANAEMIA
     Dosage: PLANNED AT A DOSE OF 1500 MILLIGRAM
     Route: 042
     Dates: start: 20181128, end: 20181128

REACTIONS (5)
  - Catheter site pain [Unknown]
  - Overdose [Unknown]
  - Administration site extravasation [Not Recovered/Not Resolved]
  - Skin discolouration [Not Recovered/Not Resolved]
  - Administration site discolouration [Not Recovered/Not Resolved]

NARRATIVE: CASE EVENT DATE: 201811
